FAERS Safety Report 5179279-7 (Version None)
Quarter: 2006Q4

REPORT INFORMATION
  Report Type: 
  Country: None (occurrence: None)
  Receive Date: 20061219
  Receipt Date: 20061212
  Transmission Date: 20070319
  Serious: Yes (Other)
  Sender: FDA-Public Use
  Company Number: US-JNJFOC-20061204742

PATIENT
  Age: 60 Year
  Sex: Male

DRUGS (1)
  1. ARESTIN [Suspect]
     Indication: PERIODONTITIS

REACTIONS (2)
  - BLOOD GLUCOSE INCREASED [None]
  - DISORIENTATION [None]
